FAERS Safety Report 8824718 (Version 1)
Quarter: 2012Q4

REPORT INFORMATION
  Report Type: 
  Country: US (occurrence: US)
  Receive Date: 20121004
  Receipt Date: 20121004
  Transmission Date: 20130627
  Serious: Yes (Hospitalization)
  Sender: FDA-Public Use
  Company Number: US-BAYER-2012-102637

PATIENT
  Age: 29 Year
  Sex: Female

DRUGS (16)
  1. YAZ [Suspect]
  2. YASMIN [Suspect]
  3. BUDEPRION [Concomitant]
     Dosage: 300 mg, 1, OM
     Route: 048
  4. PROAIR HFA [Concomitant]
     Indication: COUGH
     Dosage: 2 puff every 4 hours, PRN
     Route: 045
  5. CYMBALTA [Concomitant]
     Dosage: 30 mg, 1 week
  6. CYMBALTA [Concomitant]
     Dosage: 60 mg, UNK
  7. ALLEGRA [Concomitant]
  8. BENADRYL [Concomitant]
  9. IBUPROFEN [Concomitant]
  10. TYLENOL [Concomitant]
  11. SONATA [Concomitant]
     Dosage: 10 mg, UNK
  12. ZALEPLON [Concomitant]
     Dosage: 10 mg, daily
  13. ALLEGRA-D [Concomitant]
     Dosage: 1 daily
  14. ALLEGRA-D [Concomitant]
  15. BUSPAR [Concomitant]
     Indication: ANXIETY
     Dosage: 7.5 mg, twice daily
     Route: 048
  16. WELLBUTRIN [Concomitant]
     Indication: DEPRESSION

REACTIONS (1)
  - Pulmonary embolism [None]
